FAERS Safety Report 17154315 (Version 2)
Quarter: 2019Q4

REPORT INFORMATION
  Report Type: Spontaneous
  Country: FR (occurrence: FR)
  Receive Date: 20191213
  Receipt Date: 20191220
  Transmission Date: 20200122
  Serious: Yes (Other)
  Sender: FDA-Public Use
  Company Number: FR-ALLERGAN-1950684US

PATIENT
  Sex: Female

DRUGS (4)
  1. MEMANTINE HCL - BP [Suspect]
     Active Substance: MEMANTINE
     Dosage: 10 MG
     Route: 065
  2. FLECAINE  LP [Concomitant]
     Active Substance: FLECAINIDE
     Indication: SUPRAVENTRICULAR EXTRASYSTOLES
  3. ASPEGIC [Concomitant]
     Indication: PRODUCT USED FOR UNKNOWN INDICATION
  4. MEMANTINE HCL - BP [Suspect]
     Active Substance: MEMANTINE
     Indication: PRODUCT USED FOR UNKNOWN INDICATION
     Dosage: 20 MG, QD
     Route: 065

REACTIONS (15)
  - Anxiety [Unknown]
  - Mitral valve incompetence [Unknown]
  - Malaise [Unknown]
  - Logorrhoea [Unknown]
  - Hypervigilance [Unknown]
  - Aphasia [Unknown]
  - Impatience [Unknown]
  - Confusional state [Unknown]
  - Energy increased [Unknown]
  - Aggression [Unknown]
  - Ischaemia [Unknown]
  - Disorganised speech [Unknown]
  - Stress [Unknown]
  - Fall [Unknown]
  - Supraventricular extrasystoles [Unknown]
